FAERS Safety Report 4444447-6 (Version None)
Quarter: 2004Q3

REPORT INFORMATION
  Report Type: 
  Country: None (occurrence: None)
  Receive Date: 20040902
  Receipt Date: 20040812
  Transmission Date: 20050211
  Serious: Yes (Other)
  Sender: FDA-Public Use
  Company Number: USA040875275

PATIENT
  Age: 69 Year
  Sex: Female
  Weight: 68 kg

DRUGS (9)
  1. FORTEO [Suspect]
     Indication: OSTEOPOROSIS
     Dosage: 20 UG/1 DAY
     Dates: start: 20040720
  2. RALOXIFENE HCL [Suspect]
     Indication: OSTEOPOROSIS
     Dosage: 60 MG/1 DAY
  3. NORVASC [Concomitant]
  4. PREDNISONE [Concomitant]
  5. XANAX(ALPRAZOLAM DUM) [Concomitant]
  6. NEORAL [Concomitant]
  7. DISALCID(SALSALATE) [Concomitant]
  8. ZANTAC [Concomitant]
  9. ACTONEL [Concomitant]

REACTIONS (8)
  - AMNESIA [None]
  - CIRCULATORY COLLAPSE [None]
  - CONTUSION [None]
  - DIZZINESS [None]
  - HEAD INJURY [None]
  - HEART RATE INCREASED [None]
  - PAIN [None]
  - PHARMACEUTICAL PRODUCT COMPLAINT [None]
